FAERS Safety Report 4953553-9 (Version None)
Quarter: 2006Q1

REPORT INFORMATION
  Report Type: 
  Country: None (occurrence: None)
  Receive Date: 20060324
  Receipt Date: 20051207
  Transmission Date: 20060701
  Serious: Yes (Hospitalization, Other)
  Sender: FDA-Public Use
  Company Number: US-MERCK-0512USA01276

PATIENT
  Age: 63 Year
  Sex: Male
  Weight: 125 kg

DRUGS (1)
  1. VIOXX [Suspect]
     Route: 048
     Dates: start: 20000101, end: 20020301

REACTIONS (27)
  - ABDOMINAL PAIN [None]
  - ARTERIOSCLEROSIS CORONARY ARTERY [None]
  - ATRIAL FIBRILLATION [None]
  - AUTONOMIC NERVOUS SYSTEM IMBALANCE [None]
  - BACK DISORDER [None]
  - BLADDER NEOPLASM SURGERY [None]
  - CARDIAC DISORDER [None]
  - CARDIAC FAILURE CONGESTIVE [None]
  - CEREBROVASCULAR ACCIDENT [None]
  - CHOLECYSTITIS ACUTE [None]
  - COLONIC POLYP [None]
  - CORONARY ARTERY SURGERY [None]
  - DIARRHOEA [None]
  - EAR DISORDER [None]
  - EJECTION FRACTION DECREASED [None]
  - EPISTAXIS [None]
  - GASTRITIS [None]
  - LABILE HYPERTENSION [None]
  - MALIGNANT MELANOMA [None]
  - NEPHROLITHIASIS [None]
  - NEUROPATHY PERIPHERAL [None]
  - ORTHOSTATIC HYPOTENSION [None]
  - PANCREATITIS [None]
  - SLEEP APNOEA SYNDROME [None]
  - SPINAL DISORDER [None]
  - SPINAL OSTEOARTHRITIS [None]
  - THROMBOPHLEBITIS SUPERFICIAL [None]
